FAERS Safety Report 4873289-2 (Version None)
Quarter: 2005Q4

REPORT INFORMATION
  Report Type: 
  Country: None (occurrence: None)
  Receive Date: 20051229
  Receipt Date: 20041213
  Transmission Date: 20060501
  Serious: Yes (Other)
  Sender: FDA-Public Use
  Company Number: HQWYE044617DEC04

PATIENT
  Age: 15 Year
  Sex: Male
  Weight: 46.8 kg

DRUGS (1)
  1. REFACTO [Suspect]
     Indication: FACTOR VIII DEFICIENCY
     Dosage: 2000 IU 1X PER 2 DAY; INTRAVENOUS
     Route: 042
     Dates: start: 20040518

REACTIONS (3)
  - DRUG INEFFECTIVE [None]
  - HAEMORRHAGE [None]
  - JOINT RANGE OF MOTION DECREASED [None]
